FAERS Safety Report 8277914-8 (Version None)
Quarter: 2012Q2

REPORT INFORMATION
  Report Type: 
  Country: None (occurrence: None)
  Receive Date: 20120412
  Receipt Date: 20120402
  Transmission Date: 20120825
  Serious: Yes (Death, Hospitalization, Other)
  Sender: FDA-Public Use
  Company Number: US-ELI_LILLY_AND_COMPANY-US201011007296

PATIENT
  Sex: Female
  Weight: 58 kg

DRUGS (19)
  1. VITAMIN D [Concomitant]
     Dosage: UNK
  2. C-VITAMIN [Concomitant]
  3. CRANBERRY [Concomitant]
  4. ASPIRIN [Concomitant]
  5. VITAMINS NOS [Concomitant]
  6. CALCIUM CARBONATE [Concomitant]
  7. MAGNESIUM [Concomitant]
  8. FISH OIL [Concomitant]
  9. VITAMIN K TAB [Concomitant]
     Dosage: UNK, 3/W
  10. FORTEO [Suspect]
     Dosage: 20 UG, QD
  11. FORTEO [Suspect]
     Dosage: 20 UG, QD
  12. FORTEO [Suspect]
     Indication: OSTEOPOROSIS
     Dosage: 20 UG, QD
     Dates: start: 20101118
  13. FORTEO [Suspect]
     Dosage: 20 UG, QD
  14. CARDIAC THERAPY [Concomitant]
  15. POTASSIUM [Concomitant]
  16. FORTEO [Suspect]
     Dosage: 20 UG, QD
  17. FERROUS SULFATE TAB [Concomitant]
  18. FORTEO [Suspect]
     Dosage: 20 UG, QD
  19. PROGESTIN INJ [Concomitant]
     Indication: BONE DISORDER

REACTIONS (27)
  - URINARY TRACT INFECTION [None]
  - VENOUS INJURY [None]
  - VAGINAL HAEMORRHAGE [None]
  - MUSCULAR WEAKNESS [None]
  - DEPRESSED LEVEL OF CONSCIOUSNESS [None]
  - CAROTID ARTERY OCCLUSION [None]
  - CARDIAC DISORDER [None]
  - TRANSIENT ISCHAEMIC ATTACK [None]
  - SKIN INJURY [None]
  - FEAR [None]
  - CONTUSION [None]
  - SPEECH DISORDER [None]
  - PNEUMONIA ASPIRATION [None]
  - BRONCHITIS [None]
  - MACULAR DEGENERATION [None]
  - HEART RATE IRREGULAR [None]
  - ASTHENIA [None]
  - ARTERIOSCLEROSIS [None]
  - EATING DISORDER [None]
  - VOMITING [None]
  - CAROTID ARTERY STENOSIS [None]
  - MYOCARDIAL INFARCTION [None]
  - FALL [None]
  - TREMOR [None]
  - ILL-DEFINED DISORDER [None]
  - VEIN DISORDER [None]
  - MALAISE [None]
